FAERS Safety Report 6932506-5 (Version None)
Quarter: 2010Q3

REPORT INFORMATION
  Report Type: 
  Country: None (occurrence: None)
  Receive Date: 20100819
  Receipt Date: 20100806
  Transmission Date: 20110219
  Serious: Yes (Other)
  Sender: FDA-Public Use
  Company Number: FR-ELI_LILLY_AND_COMPANY-FR201008002173

PATIENT
  Age: 52 Year
  Sex: Female

DRUGS (2)
  1. ZYPREXA [Suspect]
     Dosage: 10 MG, DAILY (1/D)
     Route: 048
  2. LAMICTAL [Concomitant]
     Indication: BRAIN NEOPLASM
     Dosage: 400 MG, DAILY (1/D)

REACTIONS (3)
  - BRAIN NEOPLASM [None]
  - DYSPNOEA [None]
  - FATIGUE [None]
